FAERS Safety Report 20587846 (Version 1)
Quarter: 2022Q1

REPORT INFORMATION
  Report Type: Report from Study
  Country: DE (occurrence: DE)
  Receive Date: 20220314
  Receipt Date: 20220314
  Transmission Date: 20220423
  Serious: Yes (Hospitalization, Other)
  Sender: FDA-Public Use
  Company Number: DE-CELLTRION INC.-2022DE002717

PATIENT

DRUGS (3)
  1. INFLIXIMAB [Suspect]
     Active Substance: INFLIXIMAB
     Indication: Psoriatic arthropathy
     Dosage: 500 MILLIGRAM, EVERY 2 WEEKS
     Route: 058
     Dates: start: 20210224, end: 20210310
  2. INFLIXIMAB [Suspect]
     Active Substance: INFLIXIMAB
     Dosage: 120 MILLIGRAM, EVERY 2 WEEKS
     Route: 058
     Dates: start: 20210407
  3. ETORICOXIB [Concomitant]
     Active Substance: ETORICOXIB
     Dosage: 60.00 MILLIGRAM 7 DAYS A WEEK
     Dates: start: 20171109, end: 20210216

REACTIONS (2)
  - Autoimmune thyroiditis [Recovered/Resolved]
  - Off label use [Unknown]

NARRATIVE: CASE EVENT DATE: 20211117
